FAERS Safety Report 14909864 (Version 2)
Quarter: 2018Q2

REPORT INFORMATION
  Report Type: Spontaneous
  Country: CA (occurrence: CA)
  Receive Date: 20180517
  Receipt Date: 20180614
  Transmission Date: 20180711
  Serious: Yes (Hospitalization)
  Sender: FDA-Public Use
  Company Number: CA-OTSUKA-2018_012244

PATIENT
  Sex: Female

DRUGS (2)
  1. ABILIFY MAINTENA [Suspect]
     Active Substance: ARIPIPRAZOLE
     Indication: BIPOLAR DISORDER
     Dosage: 400 MG, UNK
     Route: 065
  2. ABILIFY MAINTENA [Suspect]
     Active Substance: ARIPIPRAZOLE
     Dosage: 400 MG (SECOND INJECTION AT DAY 7)
     Route: 065

REACTIONS (4)
  - Hospitalisation [Unknown]
  - Drug effect incomplete [Unknown]
  - Inappropriate schedule of drug administration [Unknown]
  - Product use in unapproved indication [Unknown]
